FAERS Safety Report 6751067-7 (Version None)
Quarter: 2010Q2

REPORT INFORMATION
  Report Type: 
  Country: None (occurrence: None)
  Receive Date: 20100602
  Receipt Date: 20100520
  Transmission Date: 20101027
  Serious: Yes (Other)
  Sender: FDA-Public Use
  Company Number: PHHY2010BR32955

PATIENT
  Age: 41 Year
  Sex: Female
  Weight: 70 kg

DRUGS (1)
  1. PARLODEL [Suspect]
     Indication: PITUITARY TUMOUR
     Dosage: 2.5 MG 2 CAPSULES DAILY
     Route: 048

REACTIONS (5)
  - DRUG DOSE OMISSION [None]
  - FEELING ABNORMAL [None]
  - HEADACHE [None]
  - PRESYNCOPE [None]
  - RETCHING [None]
